FAERS Safety Report 4519143-7 (Version None)
Quarter: 2004Q4

REPORT INFORMATION
  Report Type: 
  Country: None (occurrence: None)
  Receive Date: 20041206
  Receipt Date: 20041123
  Transmission Date: 20050328
  Serious: Yes (Hospitalization)
  Sender: FDA-Public Use
  Company Number: US-JNJFOC-20041200293

PATIENT
  Age: 43 Year
  Sex: Male

DRUGS (1)
  1. DURAGESIC [Suspect]
     Indication: PAIN
     Route: 062

REACTIONS (5)
  - ANXIETY [None]
  - ILL-DEFINED DISORDER [None]
  - INJURY [None]
  - PAIN [None]
  - PHYSICAL DISABILITY [None]
